FAERS Safety Report 10032215 (Version 1)
Quarter: 2014Q1

REPORT INFORMATION
  Report Type: Spontaneous
  Country: GB (occurrence: GB)
  Receive Date: 20140324
  Receipt Date: 20140324
  Transmission Date: 20141002
  Serious: Yes (Hospitalization, Disabling)
  Sender: FDA-Public Use
  Company Number: GB-009507513-1403GBR009953

PATIENT
  Age: 40 Year
  Sex: Male
  Weight: 90 kg

DRUGS (6)
  1. SITAGLIPTIN PHOSPHATE [Suspect]
     Route: 048
  2. E45 CREAM [Concomitant]
     Dosage: UNK
     Dates: start: 20140130
  3. GLICLAZIDE [Concomitant]
     Dosage: UNK
     Dates: start: 20131217, end: 20140114
  4. GLICLAZIDE [Concomitant]
     Dosage: UNK
     Dates: start: 20140214
  5. METFORMIN [Concomitant]
     Dosage: UNK
     Dates: start: 20131217, end: 20140220
  6. ACIDEX (CALCIUM CARBONATE (+) SODIUM ALGINATE (+) SODIUM BICARBONATE) [Concomitant]
     Dosage: UNK
     Dates: start: 20140214, end: 20140226

REACTIONS (2)
  - Dyspepsia [Recovering/Resolving]
  - Epigastric discomfort [Recovering/Resolving]
